FAERS Safety Report 12624770 (Version 1)
Quarter: 2016Q3

REPORT INFORMATION
  Report Type: Spontaneous
  Country: US (occurrence: None)
  Receive Date: 20160804
  Receipt Date: 20160804
  Transmission Date: 20161109
  Serious: Yes (Other)
  Sender: FDA-Public Use
  Company Number: None

PATIENT
  Age: 47 Year
  Sex: Female
  Weight: 110.22 kg

DRUGS (1)
  1. ABILIFY [Suspect]
     Active Substance: ARIPIPRAZOLE
     Indication: BIPOLAR DISORDER
     Route: 048
     Dates: start: 20061102, end: 20080131

REACTIONS (4)
  - Sexual dysfunction [None]
  - Eating disorder [None]
  - Compulsive shopping [None]
  - Gambling [None]

NARRATIVE: CASE EVENT DATE: 20061102
